FAERS Safety Report 8170554-0 (Version None)
Quarter: 2012Q1

REPORT INFORMATION
  Report Type: 
  Country: None (occurrence: None)
  Receive Date: 20120228
  Receipt Date: 20120222
  Transmission Date: 20120608
  Serious: Yes (Life-Threatening, Hospitalization)
  Sender: FDA-Public Use
  Company Number: FR-PFIZER INC-2012046255

PATIENT
  Age: 62 Year
  Sex: Female

DRUGS (18)
  1. ATORVASTATIN [Concomitant]
  2. SOLU-MEDROL [Concomitant]
  3. VITABACT [Concomitant]
  4. ZOVIRAX [Concomitant]
  5. CICLOSPORIN [Concomitant]
  6. POTASSIUM CHLORIDE [Concomitant]
  7. VITAMIN B1 AND B6 [Concomitant]
  8. SUFENTANIL [Concomitant]
  9. MIDAZOLAM [Concomitant]
  10. BACTRIM [Concomitant]
  11. CERTICAN [Concomitant]
  12. ROCEPHIN [Concomitant]
  13. VFEND [Suspect]
     Indication: ASPERGILLUS TEST POSITIVE
     Dosage: UNK
     Route: 048
     Dates: start: 20111128, end: 20111207
  14. CIPROFLOXACIN [Concomitant]
  15. CALCIUM CARBONATE [Concomitant]
  16. PREDNISONE TAB [Concomitant]
  17. FOLIC ACID [Concomitant]
  18. CANCIDAS [Concomitant]

REACTIONS (3)
  - MALAISE [None]
  - DISTURBANCE IN ATTENTION [None]
  - HALLUCINATION [None]
